FAERS Safety Report 21054255 (Version 2)
Quarter: 2022Q3

REPORT INFORMATION
  Report Type: Spontaneous
  Country: CA (occurrence: None)
  Receive Date: 20220707
  Receipt Date: 20220726
  Transmission Date: 20221026
  Serious: Yes (Hospitalization)
  Sender: FDA-Public Use
  Company Number: CA-ROCHE-3127383

PATIENT
  Age: 47 Year
  Sex: Female
  Weight: 60 kg

DRUGS (13)
  1. TRASTUZUMAB [Suspect]
     Active Substance: TRASTUZUMAB
     Indication: Breast cancer
     Route: 042
  2. TRASTUZUMAB [Suspect]
     Active Substance: TRASTUZUMAB
     Route: 042
  3. K-DUR [Concomitant]
     Active Substance: POTASSIUM CHLORIDE
     Dosage: DRUG DOSE FIRST ADMINISTERED IS NOT PROVIDED
  4. PROCHLORPERAZINE [Concomitant]
     Active Substance: PROCHLORPERAZINE
     Dosage: DRUG DOSE FIRST ADMINISTERED IS NOT PROVIDED
  5. TYLENOL [Concomitant]
     Active Substance: ACETAMINOPHEN
     Dosage: DOSAGE FORM OF DRUG NOT SPECIFIED
  6. ATIVAN [Concomitant]
     Active Substance: LORAZEPAM
     Dosage: DOSAGE FORM OF DRUG NOT SPECIFIED
  7. DEXAMETHASONE [Concomitant]
     Active Substance: DEXAMETHASONE
     Dosage: DOSAGE FORM OF DRUG NOT SPECIFIED
     Route: 065
  8. HYDROMORPHONE [Concomitant]
     Active Substance: HYDROMORPHONE
     Dosage: DRUG DOSE FIRST ADMINISTERED IS NOT PROVIDED
  9. RIVAROXABAN [Concomitant]
     Active Substance: RIVAROXABAN
     Dosage: DRUG DOSE FIRST ADMINISTERED IS NOT PROVIDED
  10. IMODIUM [Concomitant]
     Active Substance: LOPERAMIDE HYDROCHLORIDE
     Dosage: DOSAGE FORM OF DRUG NOT SPECIFIED
  11. CIPROFLOXACIN [Concomitant]
     Active Substance: CIPROFLOXACIN
     Dosage: DOSAGE FORM OF DRUG NOT SPECIFIED
  12. PANTOPRAZOLE [Concomitant]
     Active Substance: PANTOPRAZOLE
     Dosage: DOSAGE FORM OF DRUG NOT SPECIFIED
  13. HALDOL [Concomitant]
     Active Substance: HALOPERIDOL
     Dosage: DOSAGE FORM OF DRUG NOT SPECIFIED

REACTIONS (8)
  - Abdominal pain [Unknown]
  - Vomiting [Unknown]
  - Weight abnormal [Unknown]
  - Fatigue [Unknown]
  - Nausea [Unknown]
  - Klebsiella test positive [Unknown]
  - Hepatic enzyme increased [Unknown]
  - Medication error [Unknown]
